FAERS Safety Report 8183604-2 (Version None)
Quarter: 2012Q1

REPORT INFORMATION
  Report Type: 
  Country: None (occurrence: None)
  Receive Date: 20120130
  Receipt Date: 20110831
  Transmission Date: 20120608
  Serious: Yes (Hospitalization)
  Sender: FDA-Public Use
  Company Number: 040535

PATIENT
  Age: 49 Year
  Sex: Female
  Weight: 104 kg

DRUGS (2)
  1. LEVETIRACETAM [Suspect]
  2. CYMBALTA [Concomitant]

REACTIONS (1)
  - GRAND MAL CONVULSION [None]
